FAERS Safety Report 7505362 (Version 5)
Quarter: 2013Q2

REPORT INFORMATION
  Report Type: Report from Study
  Country: DE (occurrence: DE)
  Receive Date: 20100727
  Receipt Date: 20130430
  Transmission Date: 20140414
  Serious: Yes (Hospitalization, Other)
  Sender: FDA-Public Use
  Company Number: DE-ABBOTT-10P-062-0658219-00

PATIENT
  Age: 71 Year
  Sex: Female
  Weight: 58 kg

DRUGS (4)
  1. HUMIRA 40 MG/0.8 ML PEN [Suspect]
     Indication: RHEUMATOID ARTHRITIS
     Route: 058
     Dates: start: 20070711, end: 20100526
  2. HUMIRA 40 MG/0.8 ML PEN [Suspect]
     Dosage: 3 TIMES EVERY OTHER WEEK
     Dates: start: 201207, end: 20120810
  3. ANALGETIC DRUG [Concomitant]
     Indication: RHEUMATOID ARTHRITIS
  4. HUMALOG [Concomitant]
     Indication: DIABETES MELLITUS

REACTIONS (4)
  - Vasculitis [Recovered/Resolved]
  - Sepsis [Recovered/Resolved]
  - Leukocytoclastic vasculitis [Recovered/Resolved]
  - Vasculitis [Not Recovered/Not Resolved]
